FAERS Safety Report 8131460-0 (Version None)
Quarter: 2012Q1

REPORT INFORMATION
  Report Type: 
  Country: None (occurrence: None)
  Receive Date: 20120208
  Receipt Date: 20120116
  Transmission Date: 20120608
  Serious: Yes (Death, Hospitalization)
  Sender: FDA-Public Use
  Company Number: 2011PROUSA00871

PATIENT
  Sex: Male

DRUGS (22)
  1. ALDACTONE [Concomitant]
  2. BICALUTAMIDE [Concomitant]
  3. NEXIUM [Concomitant]
  4. AMBIEN [Concomitant]
  5. NITROGLYCERIN [Concomitant]
  6. COREG [Concomitant]
  7. ZOCOR [Concomitant]
  8. POTASSIUM CHLORIDE [Concomitant]
  9. FLOMAX /00889901/ (MORNIFLUMATE) [Concomitant]
  10. MAGNESIUM (MAGNESIUM) [Concomitant]
  11. SYNTHROID [Concomitant]
  12. NEURONTIN [Concomitant]
  13. CILOSTAZOL [Concomitant]
  14. CALCIUM 500+D (CALCIUM, COLECALCIFEROL) [Concomitant]
  15. LANOXIN [Concomitant]
  16. ISMO [Concomitant]
  17. JANUVIA [Concomitant]
  18. TORSEMIDE [Concomitant]
  19. PROVENGE [Suspect]
     Indication: PROSTATE CANCER METASTATIC
     Dosage: 250ML, SINGLE, INTRAVENOUS
     Route: 042
     Dates: start: 20111107, end: 20111107
  20. PRADAXA (DABIGATRAN ETEXILATE MESILATE) [Concomitant]
  21. IRON (IRON) [Concomitant]
  22. NITROSTAT [Concomitant]

REACTIONS (5)
  - URINARY TRACT INFECTION [None]
  - HAEMOGLOBIN DECREASED [None]
  - CARDIAC FAILURE CONGESTIVE [None]
  - FLUID OVERLOAD [None]
  - CHEST PAIN [None]
